FAERS Safety Report 20098022 (Version 1)
Quarter: 2021Q4

REPORT INFORMATION
  Report Type: Spontaneous
  Country: US (occurrence: None)
  Receive Date: 20211120
  Receipt Date: 20211120
  Transmission Date: 20220303
  Serious: Yes (Hospitalization)
  Sender: FDA-Public Use
  Company Number: None

PATIENT
  Age: 31 Year
  Sex: Female

DRUGS (4)
  1. CASIRIVIMAB [Suspect]
     Active Substance: CASIRIVIMAB
     Indication: COVID-19
  2. UNSPECIFIED INGREDIENT [Concomitant]
     Active Substance: UNSPECIFIED INGREDIENT
     Dates: start: 20211111, end: 20211111
  3. Reg eneron [Concomitant]
     Dates: start: 20211111, end: 20211111
  4. IMDEVIMAB [Suspect]
     Active Substance: IMDEVIMAB

REACTIONS (5)
  - Dizziness [None]
  - Chest discomfort [None]
  - Feeling cold [None]
  - Infusion related reaction [None]
  - Exposure during pregnancy [None]

NARRATIVE: CASE EVENT DATE: 20211111
